FAERS Safety Report 6892308-5 (Version None)
Quarter: 2010Q3

REPORT INFORMATION
  Report Type: 
  Country: None (occurrence: None)
  Receive Date: 20100731
  Receipt Date: 20080331
  Transmission Date: 20110219
  Serious: No
  Sender: FDA-Public Use
  Company Number: US-PFIZER INC-2008028968

PATIENT
  Sex: Male
  Weight: 68.04 kg

DRUGS (4)
  1. AMLODIPINE [Suspect]
     Indication: HYPERTENSION
     Route: 048
     Dates: start: 20071102, end: 20080301
  2. ATENOLOL [Concomitant]
  3. LISINOPRIL [Concomitant]
  4. PRAVASTATIN [Concomitant]

REACTIONS (1)
  - ALOPECIA [None]
